FAERS Safety Report 6346900-7 (Version None)
Quarter: 2009Q3

REPORT INFORMATION
  Report Type: 
  Country: None (occurrence: None)
  Receive Date: 20090909
  Receipt Date: 20090909
  Transmission Date: 20100115
  Serious: Yes (Hospitalization)
  Sender: FDA-Public Use
  Company Number: None

PATIENT
  Age: 35 Year
  Sex: Female
  Weight: 122.4712 kg

DRUGS (2)
  1. VENLAFAXINE [Suspect]
     Indication: DEPRESSION
     Dosage: 75 MG QHS PO
     Route: 048
     Dates: start: 20090825, end: 20090908
  2. VENLAFAXINE [Suspect]
     Indication: DEPRESSION
     Dosage: 37.5 MG QHS PO
     Route: 048
     Dates: start: 20090818, end: 20090826

REACTIONS (5)
  - ABASIA [None]
  - DRUG HYPERSENSITIVITY [None]
  - GENITAL RASH [None]
  - GENITAL SWELLING [None]
  - LOCAL SWELLING [None]
